FAERS Safety Report 24753711 (Version 1)
Quarter: 2024Q4

REPORT INFORMATION
  Report Type: Report from Study
  Country: CA (occurrence: CA)
  Receive Date: 20241219
  Receipt Date: 20241219
  Transmission Date: 20250114
  Serious: Yes (Hospitalization)
  Sender: ALEXION PHARMACEUTICALS
  Company Number: CA-AstraZeneca-CH-00768854A

PATIENT
  Age: 58 Year

DRUGS (8)
  1. CAPIVASERTIB [Suspect]
     Active Substance: CAPIVASERTIB
     Indication: HER2 positive breast cancer
  2. CAPIVASERTIB [Suspect]
     Active Substance: CAPIVASERTIB
     Route: 048
  3. CAPIVASERTIB [Suspect]
     Active Substance: CAPIVASERTIB
  4. CAPIVASERTIB [Suspect]
     Active Substance: CAPIVASERTIB
     Route: 048
  5. FASLODEX [Suspect]
     Active Substance: FULVESTRANT
     Indication: HER2 positive breast cancer
  6. FASLODEX [Suspect]
     Active Substance: FULVESTRANT
     Route: 030
  7. FASLODEX [Suspect]
     Active Substance: FULVESTRANT
  8. FASLODEX [Suspect]
     Active Substance: FULVESTRANT
     Route: 030

REACTIONS (1)
  - Abdominal pain [Not Recovered/Not Resolved]
